FAERS Safety Report 10172620 (Version 2)
Quarter: 2014Q2

REPORT INFORMATION
  Report Type: Report from Study
  Country: DE (occurrence: DE)
  Receive Date: 20140515
  Receipt Date: 20140515
  Transmission Date: 20141212
  Serious: Yes (Other)
  Sender: FDA-Public Use
  Company Number: DE-ABBVIE-13P-062-1175916-00

PATIENT
  Age: 54 Year
  Sex: Male

DRUGS (5)
  1. KALETRA [Suspect]
     Indication: HIV INFECTION
     Dosage: 2X2
     Dates: start: 2002
  2. KREON [Concomitant]
     Indication: PANCREATIC INSUFFICIENCY
     Dosage: 25000
     Dates: start: 2007
  3. TESTOSTERONE [Concomitant]
     Indication: ANDROGEN DEFICIENCY
     Dates: start: 2000
  4. RANITIDINE [Concomitant]
     Indication: PRODUCT USED FOR UNKNOWN INDICATION
  5. CETIRIZINE [Concomitant]
     Indication: PRODUCT USED FOR UNKNOWN INDICATION

REACTIONS (3)
  - Fatigue [Recovered/Resolved]
  - Affective disorder [Recovered/Resolved]
  - Fatigue [Recovered/Resolved]
